FAERS Safety Report 8987673 (Version 2)
Quarter: 2013Q1

REPORT INFORMATION
  Report Type: Spontaneous
  Country: JP (occurrence: JP)
  Receive Date: 20121227
  Receipt Date: 20130102
  Transmission Date: 20140127
  Serious: Yes (Hospitalization)
  Sender: FDA-Public Use
  Company Number: JP-PFIZER INC-2012328277

PATIENT
  Age: 60 Year
  Sex: Female

DRUGS (4)
  1. ALDACTONE A [Suspect]
     Dosage: 50 MG, 1X/DAY
     Route: 048
  2. BLOPRESS [Concomitant]
     Dosage: 4 MG, UNK
     Route: 048
  3. JANUVIA [Concomitant]
     Dosage: 50 MG, UNK
     Route: 048
  4. LASIX [Concomitant]
     Dosage: 40 MG, UNK
     Route: 048

REACTIONS (2)
  - Ascites [Recovered/Resolved]
  - Hyperammonaemia [Unknown]
